FAERS Safety Report 15161017 (Version 1)
Quarter: 2018Q3

REPORT INFORMATION
  Report Type: Report from Study
  Country: US (occurrence: US)
  Receive Date: 20180718
  Receipt Date: 20180718
  Transmission Date: 20181010
  Serious: Yes (Other)
  Sender: FDA-Public Use
  Company Number: US-JAZZ-2018-US-006724

PATIENT
  Sex: Female

DRUGS (28)
  1. DIPHENHYDRAMINE HYDROCHLORIDE. [Concomitant]
     Active Substance: DIPHENHYDRAMINE HYDROCHLORIDE
  2. XYREM [Suspect]
     Active Substance: SODIUM OXYBATE
     Indication: CATAPLEXY
     Dosage: DOSE ADJUSTMENT
     Route: 048
     Dates: start: 200801, end: 201109
  3. MELOXICAM. [Concomitant]
     Active Substance: MELOXICAM
  4. FLORASTOR [Concomitant]
     Active Substance: SACCHAROMYCES CEREVISIAE
  5. ZYPREXA [Concomitant]
     Active Substance: OLANZAPINE
  6. HYALGAN [Concomitant]
     Active Substance: HYALURONATE SODIUM
  7. LATANOPROST. [Concomitant]
     Active Substance: LATANOPROST
  8. NORCO [Concomitant]
     Active Substance: ACETAMINOPHEN\HYDROCODONE BITARTRATE
  9. CALCIUM +D3 [Concomitant]
     Active Substance: CALCIUM\CHOLECALCIFEROL
  10. FERROUS GLUCONATE [Concomitant]
     Active Substance: FERROUS GLUCONATE
  11. XYREM [Suspect]
     Active Substance: SODIUM OXYBATE
     Indication: HYPERSOMNIA
     Dosage: 2.5 G, BID
     Route: 048
     Dates: start: 200801, end: 200801
  12. LAMICTAL [Concomitant]
     Active Substance: LAMOTRIGINE
  13. IBUPROFEN. [Concomitant]
     Active Substance: IBUPROFEN
  14. METROGEL [Concomitant]
     Active Substance: METRONIDAZOLE
  15. REFRESH PLUS [Concomitant]
     Active Substance: CARBOXYMETHYLCELLULOSE SODIUM
  16. XALATAN [Concomitant]
     Active Substance: LATANOPROST
  17. CLONAZEPAM. [Suspect]
     Active Substance: CLONAZEPAM
     Indication: PRODUCT USED FOR UNKNOWN INDICATION
     Dosage: 0.125 MG
     Dates: end: 20171106
  18. COMBIGAN [Concomitant]
     Active Substance: BRIMONIDINE TARTRATE\TIMOLOL MALEATE
  19. ASPIRIN EC [Concomitant]
     Active Substance: ASPIRIN
  20. VACCINIUM MYRTILLUS [Concomitant]
  21. XYREM [Suspect]
     Active Substance: SODIUM OXYBATE
     Dosage: 3.75 G, BID
     Route: 048
     Dates: start: 201109
  22. CLONAZEPAM. [Suspect]
     Active Substance: CLONAZEPAM
     Dosage: 2 MG
  23. RESTASIS [Concomitant]
     Active Substance: CYCLOSPORINE
  24. LORAZEPAM. [Concomitant]
     Active Substance: LORAZEPAM
  25. KRILL OIL [Concomitant]
     Active Substance: DIETARY SUPPLEMENT
  26. PROAIR HFA [Concomitant]
     Active Substance: ALBUTEROL SULFATE
  27. CYMBALTA [Concomitant]
     Active Substance: DULOXETINE HYDROCHLORIDE
  28. XANTOFYL [Concomitant]

REACTIONS (9)
  - Malaise [Not Recovered/Not Resolved]
  - Balance disorder [Unknown]
  - Rib fracture [Unknown]
  - Head injury [Unknown]
  - Drug ineffective [Not Recovered/Not Resolved]
  - Unevaluable event [Not Recovered/Not Resolved]
  - Insomnia [Not Recovered/Not Resolved]
  - Cataplexy [Not Recovered/Not Resolved]
  - Fall [Unknown]
